FAERS Safety Report 19925073 (Version 4)
Quarter: 2021Q4

REPORT INFORMATION
  Report Type: Spontaneous
  Country: US (occurrence: US)
  Receive Date: 20211006
  Receipt Date: 20211231
  Transmission Date: 20220303
  Serious: Yes (Other)
  Sender: FDA-Public Use
  Company Number: US-BIOVITRUM-2021US8729

PATIENT
  Age: 25 Year
  Sex: Female

DRUGS (3)
  1. KINERET [Suspect]
     Active Substance: ANAKINRA
     Indication: Congenital anomaly
     Route: 058
     Dates: start: 201904
  2. KINERET [Suspect]
     Active Substance: ANAKINRA
     Indication: Chronic infantile neurological cutaneous and articular syndrome
     Dosage: 200 MG IN MORNING AND 100 AT NIGHT
     Route: 058
  3. KINERET [Suspect]
     Active Substance: ANAKINRA
     Dosage: 200MG AM,?100 MG PM
     Route: 058
     Dates: start: 20190417

REACTIONS (13)
  - COVID-19 [Recovered/Resolved]
  - Pulmonary congestion [Unknown]
  - Abortion spontaneous [Unknown]
  - Haemorrhage [Unknown]
  - Asthma [Unknown]
  - Fatigue [Not Recovered/Not Resolved]
  - Muscle mass [Unknown]
  - Lymphadenopathy [Unknown]
  - Mass [Unknown]
  - Injection site scar [Unknown]
  - Injection site bruising [Unknown]
  - Maternal exposure during pregnancy [Recovered/Resolved]
  - Off label use [Unknown]

NARRATIVE: CASE EVENT DATE: 20190417
